FAERS Safety Report 10979533 (Version 5)
Quarter: 2015Q3

REPORT INFORMATION
  Report Type: Spontaneous
  Country: US (occurrence: US)
  Receive Date: 20150402
  Receipt Date: 20150728
  Transmission Date: 20151125
  Serious: Yes (Hospitalization, Other)
  Sender: FDA-Public Use
  Company Number: US-009507513-1504USA001163

PATIENT
  Sex: Female
  Weight: 53.61 kg

DRUGS (2)
  1. JANUVIA [Suspect]
     Active Substance: SITAGLIPTIN PHOSPHATE
     Dosage: 100 MG, QD
     Route: 048
     Dates: start: 20090121, end: 20090220
  2. JANUVIA [Suspect]
     Active Substance: SITAGLIPTIN PHOSPHATE
     Indication: TYPE 2 DIABETES MELLITUS
     Dosage: 100 MG, QD
     Route: 048
     Dates: start: 20120307, end: 20130409

REACTIONS (29)
  - Retinal vein occlusion [Unknown]
  - Depression [Unknown]
  - Urinary incontinence [Unknown]
  - Chromaturia [Unknown]
  - Large intestine benign neoplasm [Unknown]
  - Metastases to adrenals [Unknown]
  - Metastases to lymph nodes [Unknown]
  - Haemorrhoids [Unknown]
  - Muscle spasms [Unknown]
  - Urinary tract infection [Unknown]
  - Vitamin D deficiency [Unknown]
  - Aortic arteriosclerosis [Unknown]
  - Emphysema [Unknown]
  - Poor quality sleep [Unknown]
  - Metastases to retroperitoneum [Unknown]
  - Diverticulum [Unknown]
  - Anxiety [Unknown]
  - Renal atrophy [Unknown]
  - Hypercholesterolaemia [Unknown]
  - Drug administration error [Unknown]
  - Pancreatic carcinoma metastatic [Unknown]
  - Fatigue [Unknown]
  - Hypertension [Unknown]
  - Metastases to liver [Unknown]
  - Metastases to lung [Unknown]
  - Aortic aneurysm [Unknown]
  - Pelvic mass [Unknown]
  - Toxicity to various agents [Unknown]
  - Constipation [Unknown]

NARRATIVE: CASE EVENT DATE: 20120723
